FAERS Safety Report 8234038-3 (Version None)
Quarter: 2012Q1

REPORT INFORMATION
  Report Type: 
  Country: None (occurrence: None)
  Receive Date: 20120326
  Receipt Date: 20120326
  Transmission Date: 20120608
  Serious: Yes (Other)
  Sender: FDA-Public Use
  Company Number: None

PATIENT
  Age: 56 Year
  Sex: Female
  Weight: 56.699 kg

DRUGS (1)
  1. PLAVIX [Suspect]
     Route: 048
     Dates: start: 20030701, end: 20040301

REACTIONS (1)
  - CEREBROVASCULAR ACCIDENT [None]
